FAERS Safety Report 7372922-3 (Version None)
Quarter: 2011Q1

REPORT INFORMATION
  Report Type: 
  Country: None (occurrence: None)
  Receive Date: 20110324
  Receipt Date: 20110321
  Transmission Date: 20110831
  Serious: Yes (Other)
  Sender: FDA-Public Use
  Company Number: US-PFIZER INC-2011061824

PATIENT
  Sex: Female

DRUGS (5)
  1. CADUET [Suspect]
     Dosage: UNK
  2. ASCORBIC ACID [Concomitant]
     Dosage: UNK
  3. ACETYLSALICYLIC ACID [Concomitant]
     Dosage: 81 MG, 1X/DAY
  4. GARLIC [Concomitant]
     Dosage: UNK, 1X/DAY
  5. VITAMIN D [Concomitant]
     Dosage: 800 UG, UNK

REACTIONS (2)
  - NERVOUSNESS [None]
  - HYPERTENSION [None]
